FAERS Safety Report 4698205-8 (Version None)
Quarter: 2005Q2

REPORT INFORMATION
  Report Type: 
  Country: None (occurrence: None)
  Receive Date: 20050623
  Receipt Date: 20050617
  Transmission Date: 20051028
  Serious: Yes (Other)
  Sender: FDA-Public Use
  Company Number: US-JNJFOC-20050502915

PATIENT
  Age: 77 Year
  Sex: Female

DRUGS (9)
  1. PEPCID AC [Suspect]
     Route: 049
  2. PEPCID AC [Suspect]
     Dosage: 10-20 MG, PRN, PO
     Route: 049
  3. LIPITOR [Interacting]
  4. MALIC ACID [Interacting]
     Indication: FIBROMYALGIA
  5. MAGNESIUM [Interacting]
     Indication: DRUG USE FOR UNKNOWN INDICATION
  6. PLAVIX [Interacting]
     Indication: DRUG USE FOR UNKNOWN INDICATION
  7. COZAAR [Interacting]
     Indication: DRUG USE FOR UNKNOWN INDICATION
  8. FOLTX [Interacting]
     Indication: DRUG USE FOR UNKNOWN INDICATION
  9. CHOOZ GUM [Concomitant]

REACTIONS (3)
  - ABASIA [None]
  - DIZZINESS [None]
  - DRUG INTERACTION [None]
